FAERS Safety Report 4685614-6 (Version None)
Quarter: 2005Q2

REPORT INFORMATION
  Report Type: 
  Country: None (occurrence: None)
  Receive Date: 20050608
  Receipt Date: 20050518
  Transmission Date: 20051028
  Serious: Yes (Death)
  Sender: FDA-Public Use
  Company Number: 2005076926

PATIENT
  Age: 79 Year
  Sex: Male

DRUGS (1)
  1. CARDURA [Suspect]
     Indication: BENIGN PROSTATIC HYPERPLASIA
     Dosage: 4 MG (4 MG, 1 IN 1 D), ORAL
     Route: 048
     Dates: start: 20021001, end: 20050312

REACTIONS (1)
  - CARDIAC DISORDER [None]
